FAERS Safety Report 8809554 (Version 1)
Quarter: 2012Q4

REPORT INFORMATION
  Report Type: 
  Country: DE (occurrence: DE)
  Receive Date: 20120926
  Receipt Date: 20120926
  Transmission Date: 20130627
  Serious: Yes (Hospitalization)
  Sender: FDA-Public Use
  Company Number: DE-PFIZER INC-2012233636

PATIENT
  Age: 40 Year
  Sex: Female
  Weight: 87.2 kg

DRUGS (6)
  1. GENOTROPIN [Suspect]
     Indication: GROWTH HORMONE DEFICIENCY
     Dosage: 0.3 mg/day, 7 injections/week
     Route: 058
     Dates: start: 20081125
  2. HYDROCORTISONE [Concomitant]
     Indication: BLOOD CORTICOTROPHIN DECREASED
     Dosage: UNK
     Dates: start: 20080109
  3. MINIRIN RHINYLE [Concomitant]
     Indication: BLOOD ANTIDIURETIC HORMONE DECREASED
     Dosage: UNK
     Dates: start: 20080109
  4. L-THYROXINE [Concomitant]
     Indication: BLOOD THYROID STIMULATING HORMONE DECREASED
     Dosage: UNK
     Dates: start: 20090317
  5. L-THYROXINE [Concomitant]
     Indication: PRIMARY HYPOTHYROIDISM
  6. SEQUIDOT [Concomitant]
     Indication: HYPOGONADISM
     Dosage: UNK
     Dates: start: 20090317

REACTIONS (2)
  - Gastrointestinal infection [Unknown]
  - Vomiting [Unknown]
